FAERS Safety Report 15625599 (Version 2)
Quarter: 2018Q4

REPORT INFORMATION
  Report Type: Report from Study
  Country: AU (occurrence: AU)
  Receive Date: 20181116
  Receipt Date: 20181205
  Transmission Date: 20190205
  Serious: Yes (Death, Other)
  Sender: FDA-Public Use
  Company Number: AU-ROCHE-2213454

PATIENT

DRUGS (3)
  1. RIBAVIRIN. [Suspect]
     Active Substance: RIBAVIRIN
     Indication: HEPATITIS C
     Dosage: EITHER 1000 MG OR 1200 MG ACCORDING TO BODY WEIGHT ({ 75 KG AND }/=75 KG, RESPECTIVELY) WITH FOOD
     Route: 048
  2. DASABUVIR [Suspect]
     Active Substance: DASABUVIR
     Indication: HEPATITIS C
     Route: 048
  3. OMBITASVIR/PARITAPREVIR/RITONAVIR [Suspect]
     Active Substance: OMBITASVIR\PARITAPREVIR\RITONAVIR
     Indication: HEPATITIS C
     Dosage: FORM STRENGTH: PARITEPRAVIR/RITONAVIR/OMBITASVIR= 75 MG/50 MG/12.5 MG
     Route: 048

REACTIONS (2)
  - Intentional overdose [Fatal]
  - Nausea [Unknown]
